FAERS Safety Report 23528061 (Version 1)
Quarter: 2024Q1

REPORT INFORMATION
  Report Type: Spontaneous
  Country: US (occurrence: None)
  Receive Date: 20240215
  Receipt Date: 20240215
  Transmission Date: 20240410
  Serious: Yes (Hospitalization)
  Sender: FDA-Public Use
  Company Number: None

PATIENT
  Sex: Male

DRUGS (2)
  1. OXBRYTA [Suspect]
     Active Substance: VOXELOTOR
     Indication: Sickle cell anaemia with crisis
     Dosage: OTHER FREQUENCY : MON, WED, FRI;?TAKE 2 TABLETS BY MOUTH ONCE DAILY ON MONDAY, WEDNESDAY AND FRIDAY
     Route: 048
  2. OXBRYTA [Suspect]
     Active Substance: VOXELOTOR
     Dosage: OTHER FREQUENCY : TUE, TH.,SAT, SUN;?
     Route: 048

REACTIONS (2)
  - Hospitalisation [None]
  - Emergency care [None]
